FAERS Safety Report 4512883-5 (Version None)
Quarter: 2004Q4

REPORT INFORMATION
  Report Type: 
  Country: None (occurrence: None)
  Receive Date: 20041118
  Receipt Date: 20041118
  Transmission Date: 20050328
  Serious: Yes (Other)
  Sender: FDA-Public Use
  Company Number: None

PATIENT
  Age: 49 Year
  Sex: Female

DRUGS (2)
  1. OXYCONTIN [Suspect]
     Dosage: ONE Q 12H -ORAL
     Route: 048
  2. OXY IR 5 MG [Suspect]
     Dosage: ONE Q 6 H -ORAL
     Route: 048

REACTIONS (5)
  - BEDRIDDEN [None]
  - CONDITION AGGRAVATED [None]
  - DRUG INEFFECTIVE [None]
  - PAIN [None]
  - PHARMACEUTICAL PRODUCT COMPLAINT [None]
